FAERS Safety Report 5255991-6 (Version None)
Quarter: 2007Q1

REPORT INFORMATION
  Report Type: 
  Country: None (occurrence: None)
  Receive Date: 20070302
  Receipt Date: 20070302
  Transmission Date: 20070707
  Serious: Yes (Hospitalization)
  Sender: FDA-Public Use
  Company Number: None

PATIENT
  Age: 93 Year
  Sex: Male

DRUGS (1)
  1. PROCALAMINE [Suspect]
     Indication: PARENTERAL NUTRITION
     Dosage: 40ML/MIN   IV DRIP
     Route: 041
     Dates: start: 20070125, end: 20070125

REACTIONS (5)
  - BURNS SECOND DEGREE [None]
  - ERYTHEMA [None]
  - OEDEMA PERIPHERAL [None]
  - PERIPHERAL COLDNESS [None]
  - SKIN LESION [None]
